FAERS Safety Report 10210543 (Version 1)
Quarter: 2014Q2

REPORT INFORMATION
  Report Type: Spontaneous
  Country: US (occurrence: None)
  Receive Date: 20140528
  Receipt Date: 20140528
  Transmission Date: 20141212
  Serious: Yes (Hospitalization, Other)
  Sender: FDA-Public Use
  Company Number: ADR-2014-00883

PATIENT
  Age: 17 Year
  Sex: Female

DRUGS (1)
  1. BACLOFEN [Suspect]

REACTIONS (16)
  - Fall [None]
  - No therapeutic response [None]
  - Generalised tonic-clonic seizure [None]
  - Pupil fixed [None]
  - Respiratory failure [None]
  - Vomiting [None]
  - Stress [None]
  - Decreased appetite [None]
  - Bradycardia [None]
  - Hypertension [None]
  - Areflexia [None]
  - Paralysis flaccid [None]
  - Lactic acidosis [None]
  - CSF protein increased [None]
  - Coma [None]
  - Overdose [None]
